FAERS Safety Report 23337056 (Version 1)
Quarter: 2023Q4

REPORT INFORMATION
  Report Type: Spontaneous
  Country: IN (occurrence: IN)
  Receive Date: 20231226
  Receipt Date: 20231226
  Transmission Date: 20240109
  Serious: Yes (Other)
  Sender: FDA-Public Use
  Company Number: IN-GLAXOSMITHKLINE-INCH2023HLN066233

PATIENT

DRUGS (2)
  1. DICLOFENAC SODIUM [Suspect]
     Active Substance: DICLOFENAC\DICLOFENAC SODIUM
     Indication: Abdominal pain
     Dosage: 50 MG
  2. CEFIXIME [Suspect]
     Active Substance: CEFIXIME
     Indication: Diarrhoea
     Dosage: 200 MG

REACTIONS (10)
  - Erythema multiforme [Recovered/Resolved]
  - Mouth ulceration [Recovered/Resolved]
  - Pain [Recovered/Resolved]
  - Eating disorder [Recovered/Resolved]
  - Lip ulceration [Recovered/Resolved]
  - Skin lesion [Recovered/Resolved]
  - Scab [Recovered/Resolved]
  - Lip haemorrhage [Recovered/Resolved]
  - Erythema [Recovered/Resolved]
  - Oral mucosal exfoliation [Recovered/Resolved]
